FAERS Safety Report 6475450-2 (Version None)
Quarter: 2009Q4

REPORT INFORMATION
  Report Type: 
  Country: None (occurrence: None)
  Receive Date: 20091204
  Receipt Date: 20091202
  Transmission Date: 20100525
  Serious: Yes (Other)
  Sender: FDA-Public Use
  Company Number: US-ROXANE LABORATORIES, INC.-2009-RO-01205RO

PATIENT
  Age: 50 Year
  Sex: Male

DRUGS (6)
  1. AZATHIOPRINE [Suspect]
     Indication: COLITIS ULCERATIVE
     Dosage: 50 MG
  2. PREDNISONE [Suspect]
  3. MESALAMINE [Suspect]
  4. MERCAPTOPURINE [Concomitant]
     Indication: ALLERGENIC DESENSITISATION PROCEDURE
     Dosage: 12.5 MG
  5. MERCAPTOPURINE [Concomitant]
  6. MERCAPTOPURINE [Concomitant]
     Dosage: 100 MG

REACTIONS (1)
  - HEPATITIS [None]
